FAERS Safety Report 22359255 (Version 2)
Quarter: 2024Q1

REPORT INFORMATION
  Report Type: Spontaneous
  Country: PT (occurrence: PT)
  Receive Date: 20230524
  Receipt Date: 20240227
  Transmission Date: 20240410
  Serious: Yes (Hospitalization, Other)
  Sender: FDA-Public Use
  Company Number: PT-AUROBINDO-AUR-APL-2023-038166

PATIENT
  Age: 54 Year
  Sex: Female

DRUGS (4)
  1. BACLOFEN [Suspect]
     Active Substance: BACLOFEN
     Indication: Neuromyelitis optica spectrum disorder
     Dosage: 10 MILLIGRAM, DAILY
     Route: 065
  2. PREDNISOLONE [Suspect]
     Active Substance: PREDNISOLONE
     Indication: Neuromyelitis optica spectrum disorder
     Dosage: 20 MILLIGRAM, ONCE A DAY
     Route: 065
  3. AZATHIOPRINE [Suspect]
     Active Substance: AZATHIOPRINE
     Indication: Neuromyelitis optica spectrum disorder
     Dosage: 100 MILLIGRAM
     Route: 065
  4. AZATHIOPRINE [Concomitant]
     Active Substance: AZATHIOPRINE
     Indication: Neuromyelitis optica spectrum disorder
     Dosage: 100 MILLIGRAM, ONCE A DAY
     Route: 065

REACTIONS (4)
  - Myopathy [Recovering/Resolving]
  - Respiratory muscle weakness [Recovering/Resolving]
  - Off label use [Recovering/Resolving]
  - Excessive dynamic airway collapse [Unknown]
